FAERS Safety Report 9300073 (Version 1)
Quarter: 2013Q1

REPORT INFORMATION
  Report Type: Spontaneous
  Country: US (occurrence: None)
  Receive Date: 20121227
  Receipt Date: 20121227
  Transmission Date: 20140127
  Serious: Yes (Other)
  Sender: FDA-Public Use
  Company Number: PHEH2012US003435

PATIENT
  Age: 44 Year
  Sex: Male
  Weight: 207 kg

DRUGS (4)
  1. CLOZARIL [Suspect]
     Indication: BIPOLAR DISORDER
  2. PROLIXIN [Suspect]
  3. ABILIFY (ARIPRAZOLE) [Concomitant]
  4. CONGENTIN (BENZATROPINE MESILATE) [Concomitant]

REACTIONS (2)
  - Tardive dyskinesia [None]
  - Neuroleptic malignant syndrome [None]
